FAERS Safety Report 5158968-4 (Version None)
Quarter: 2006Q4

REPORT INFORMATION
  Report Type: 
  Country: None (occurrence: None)
  Receive Date: 20061128
  Receipt Date: 20061110
  Transmission Date: 20070319
  Serious: Yes (Hospitalization)
  Sender: FDA-Public Use
  Company Number: JP-BRISTOL-MYERS SQUIBB COMPANY-13582275

PATIENT
  Age: 31 Year
  Sex: Male

DRUGS (3)
  1. EFAVIRENZ [Suspect]
     Indication: HIV INFECTION
     Route: 048
     Dates: start: 20030328, end: 20040527
  2. LAMIVUDINE [Suspect]
     Indication: HIV INFECTION
     Dosage: 300 MG DAILY FROM 20-APR-05 TO 13-JUN-2005
     Route: 048
     Dates: start: 20030328, end: 20050613
  3. ZIDOVUDINE [Suspect]
     Indication: HIV INFECTION
     Dosage: DECREASED TO 400 MG OD, FROM 06-MAY-03 TO 27-MAY-04.
     Route: 048
     Dates: start: 20030328, end: 20040527

REACTIONS (2)
  - DEPRESSION [None]
  - RENAL IMPAIRMENT [None]
